FAERS Safety Report 5239772-5 (Version None)
Quarter: 2007Q1

REPORT INFORMATION
  Report Type: 
  Country: None (occurrence: None)
  Receive Date: 20070216
  Receipt Date: 20070206
  Transmission Date: 20070707
  Serious: Yes (Death, Hospitalization)
  Sender: FDA-Public Use
  Company Number: FR-ELI_LILLY_AND_COMPANY-FR200702000954

PATIENT
  Age: 57 Year
  Sex: Male

DRUGS (2)
  1. GEMZAR [Suspect]
     Indication: PANCREATIC CARCINOMA
     Dosage: 1600 MG, OTHER
     Route: 042
     Dates: start: 20060614, end: 20060811
  2. ELOXATIN [Concomitant]
     Indication: PANCREATIC CARCINOMA
     Dosage: 150 MG, OTHER
     Route: 042
     Dates: start: 20060614, end: 20060811

REACTIONS (5)
  - COMA HEPATIC [None]
  - HEPATITIS CHOLESTATIC [None]
  - HICCUPS [None]
  - LEUKOCYTOSIS [None]
  - THROMBOCYTOPENIA [None]
